FAERS Safety Report 5600427-6 (Version None)
Quarter: 2008Q1

REPORT INFORMATION
  Report Type: 
  Country: None (occurrence: None)
  Receive Date: 20080123
  Receipt Date: 20080116
  Transmission Date: 20080703
  Serious: Yes (Disabling)
  Sender: FDA-Public Use
  Company Number: PHHY2008JP00835

PATIENT
  Age: 84 Year
  Sex: Female

DRUGS (2)
  1. ARIMIDEX [Concomitant]
     Dosage: 1 MG/DAY
     Route: 048
     Dates: start: 20020423, end: 20070325
  2. ZOMETA [Suspect]
     Indication: BREAST CANCER
     Dosage: 4 MG EVERY 4 WEEKS
     Route: 041
     Dates: start: 20061117, end: 20070601

REACTIONS (2)
  - DENTAL TREATMENT [None]
  - OSTEOMYELITIS [None]
